FAERS Safety Report 13188139 (Version 7)
Quarter: 2018Q1

REPORT INFORMATION
  Report Type: Spontaneous
  Country: US (occurrence: US)
  Receive Date: 20170206
  Receipt Date: 20180130
  Transmission Date: 20180508
  Serious: Yes (Congenital Anomaly, Other)
  Sender: FDA-Public Use
  Company Number: PHEH2017US003654

PATIENT
  Sex: Female

DRUGS (3)
  1. ZOFRAN [Suspect]
     Active Substance: ONDANSETRON HYDROCHLORIDE
     Indication: FOETAL EXPOSURE DURING PREGNANCY
     Dosage: MOTHER DOSE FREQUENCY: Q6H
     Route: 064
  2. ZOFRAN [Suspect]
     Active Substance: ONDANSETRON HYDROCHLORIDE
     Indication: FOETAL EXPOSURE DURING PREGNANCY
     Dosage: MOTHER DOSE: 1 DF, Q6H
     Route: 064
  3. ZOFRAN ODT [Suspect]
     Active Substance: ONDANSETRON HYDROCHLORIDE
     Indication: FOETAL EXPOSURE DURING PREGNANCY
     Route: 064

REACTIONS (29)
  - Post procedural complication [Unknown]
  - DiGeorge^s syndrome [Unknown]
  - Attention deficit/hyperactivity disorder [Unknown]
  - Upper respiratory tract infection [Unknown]
  - Underweight [Unknown]
  - Congenital pneumonia [Unknown]
  - Heart disease congenital [Unknown]
  - Hiatus hernia [Unknown]
  - Asthma [Unknown]
  - Retching [Unknown]
  - Thrombocytopenia neonatal [Unknown]
  - Gastrooesophageal reflux disease [Unknown]
  - Cerebral palsy [Unknown]
  - Convulsion neonatal [Unknown]
  - Failure to thrive [Recovering/Resolving]
  - Hypocalcaemia [Recovered/Resolved]
  - Premature baby [Unknown]
  - Dysphagia [Unknown]
  - Ear infection [Unknown]
  - Foetal exposure during pregnancy [Unknown]
  - Hypomagnesaemia [Unknown]
  - Neonatal hypoparathyroidism [Unknown]
  - Restless legs syndrome [Unknown]
  - Otitis media [Unknown]
  - Dental caries [Unknown]
  - Anomalous pulmonary venous connection [Unknown]
  - Febrile convulsion [Unknown]
  - Anaemia neonatal [Unknown]
  - Language disorder [Unknown]
